FAERS Safety Report 6741965-2 (Version None)
Quarter: 2010Q2

REPORT INFORMATION
  Report Type: 
  Country: None (occurrence: None)
  Receive Date: 20100526
  Receipt Date: 20100518
  Transmission Date: 20101027
  Serious: Yes (Death, Life-Threatening, Hospitalization, Other)
  Sender: FDA-Public Use
  Company Number: GR-SANOFI-AVENTIS-2010SA028980

PATIENT
  Age: 79 Year
  Sex: Female
  Weight: 75 kg

DRUGS (7)
  1. ENOXAPARIN SODIUM [Suspect]
     Dates: start: 20090901
  2. ENOXAPARIN SODIUM [Suspect]
     Dates: start: 20091106, end: 20091115
  3. TARGOCID [Concomitant]
     Indication: INFECTION PROPHYLAXIS
     Dates: start: 20090831, end: 20090831
  4. PLAQUENIL [Concomitant]
     Indication: RHEUMATOID ARTHRITIS
     Dates: start: 19900101
  5. ARAVA [Concomitant]
     Indication: RHEUMATOID ARTHRITIS
     Dates: start: 20070101
  6. CIPROFLOXACIN [Concomitant]
     Indication: INFECTION
     Dates: start: 20090929, end: 20091026
  7. RIFADIN [Concomitant]
     Indication: INFECTION
     Dates: start: 20090930, end: 20091026

REACTIONS (2)
  - CARDIAC ARREST [None]
  - MYOCARDIAL ISCHAEMIA [None]
